FAERS Safety Report 24779542 (Version 1)
Quarter: 2024Q4

REPORT INFORMATION
  Report Type: Spontaneous
  Country: US (occurrence: None)
  Receive Date: 20241226
  Receipt Date: 20241226
  Transmission Date: 20250114
  Serious: Yes (Hospitalization)
  Sender: Public
  Company Number: None

PATIENT
  Age: 49 Year
  Sex: Male

DRUGS (1)
  1. IMATINIB MESYLATE [Suspect]
     Active Substance: IMATINIB MESYLATE
     Indication: Myeloproliferative neoplasm
     Dosage: FREQUENCY : DAILY;?

REACTIONS (4)
  - Nausea [None]
  - Fatigue [None]
  - Scrotal cyst [None]
  - Intentional dose omission [None]
